FAERS Safety Report 10184607 (Version 2)
Quarter: 2014Q2

REPORT INFORMATION
  Report Type: Spontaneous
  Country: US (occurrence: None)
  Receive Date: 20140519
  Receipt Date: 20140528
  Transmission Date: 20141212
  Serious: Yes (Other)
  Sender: FDA-Public Use
  Company Number: AUR-APL-2014-05670

PATIENT
  Age: 68 Year
  Sex: Female

DRUGS (1)
  1. LEVOFLOXACIN [Suspect]
     Indication: TONSILLITIS
     Dosage: 1 IN 1 D
     Dates: start: 20140115, end: 20140118

REACTIONS (41)
  - Abasia [None]
  - Thinking abnormal [None]
  - Nervous system disorder [None]
  - Toxicity to various agents [None]
  - Loss of employment [None]
  - Tendonitis [None]
  - Plantar fasciitis [None]
  - Nausea [None]
  - Palpitations [None]
  - Myalgia [None]
  - Oedema [None]
  - Anxiety [None]
  - Costochondritis [None]
  - Crepitations [None]
  - Vision blurred [None]
  - Headache [None]
  - Confusional state [None]
  - Paranoia [None]
  - Photophobia [None]
  - Abdominal discomfort [None]
  - Pyrexia [None]
  - Gastrointestinal pain [None]
  - Chills [None]
  - Muscle spasms [None]
  - Ear pain [None]
  - Lymphadenopathy [None]
  - Chest pain [None]
  - Panic reaction [None]
  - Vitreous floaters [None]
  - Purpura [None]
  - Hyperacusis [None]
  - Hypersensitivity [None]
  - Asthma [None]
  - Insomnia [None]
  - Hallucination [None]
  - Depression [None]
  - Sunburn [None]
  - Tinnitus [None]
  - Amnesia [None]
  - Sinusitis [None]
  - Palpitations [None]
